FAERS Safety Report 9379816 (Version 1)
Quarter: 2013Q3

REPORT INFORMATION
  Report Type: Spontaneous
  Country: US (occurrence: None)
  Receive Date: 20130701
  Receipt Date: 20130701
  Transmission Date: 20140515
  Serious: Yes (Hospitalization)
  Sender: FDA-Public Use
  Company Number: None

PATIENT
  Age: 59 Year
  Sex: Male
  Weight: 89 kg

DRUGS (1)
  1. NAFCILLIN [Suspect]
     Indication: INFECTION
     Route: 042
     Dates: start: 20120404, end: 20130406

REACTIONS (2)
  - Tubulointerstitial nephritis [None]
  - Renal failure [None]
